FAERS Safety Report 23638295 (Version 1)
Quarter: 2024Q1

REPORT INFORMATION
  Report Type: Spontaneous
  Country: US (occurrence: None)
  Receive Date: 20240315
  Receipt Date: 20240315
  Transmission Date: 20240410
  Serious: Yes (Hospitalization)
  Sender: FDA-Public Use
  Company Number: None

PATIENT
  Sex: Male

DRUGS (3)
  1. SILDENAFIL CITRATE [Suspect]
     Active Substance: SILDENAFIL CITRATE
     Indication: Pulmonary arterial hypertension
     Dosage: 20MG TID PO
     Route: 048
     Dates: start: 202203
  2. DOFETILIDE [Concomitant]
  3. TYVASO DPI MAINT KIT PWD [Concomitant]

REACTIONS (3)
  - Cough [None]
  - Renal impairment [None]
  - Electrolyte imbalance [None]
